FAERS Safety Report 25944639 (Version 1)
Quarter: 2025Q4

REPORT INFORMATION
  Report Type: Spontaneous
  Country: ZA (occurrence: ZA)
  Receive Date: 20251021
  Receipt Date: 20251021
  Transmission Date: 20260117
  Serious: Yes (Other)
  Sender: PFIZER
  Company Number: ZA-PFIZER INC-PV202500123256

PATIENT
  Age: 37 Year
  Sex: Female

DRUGS (4)
  1. METHOTREXATE SODIUM [Suspect]
     Active Substance: METHOTREXATE SODIUM
     Dosage: UNK
     Dates: start: 20170201
  2. CHLOROQUINE [Suspect]
     Active Substance: CHLOROQUINE
     Dosage: UNK
     Dates: start: 20180222
  3. ARAVA [Suspect]
     Active Substance: LEFLUNOMIDE
     Dosage: UNK
     Dates: start: 20180202
  4. SIMPONI [Suspect]
     Active Substance: GOLIMUMAB
     Dosage: 50 MG, EVERY 28 DAYS
     Route: 058
     Dates: start: 20190912

REACTIONS (1)
  - Pulmonary hypertension [Unknown]

NARRATIVE: CASE EVENT DATE: 20220522
